FAERS Safety Report 13953018 (Version 1)
Quarter: 2017Q3

REPORT INFORMATION
  Report Type: Spontaneous
  Country: US (occurrence: US)
  Receive Date: 20170911
  Receipt Date: 20170911
  Transmission Date: 20171128
  Serious: No
  Sender: FDA-Public Use
  Company Number: PHEH2017US028983

PATIENT
  Sex: Female
  Weight: 66.67 kg

DRUGS (2)
  1. TIMOLOL GFS [Suspect]
     Active Substance: TIMOLOL MALEATE
     Indication: GLAUCOMA
     Dosage: 1 GTT, QHS
     Route: 047
  2. KELP [Concomitant]
     Active Substance: KELP
     Indication: IODINE DEFICIENCY
     Dosage: UNK
     Route: 065

REACTIONS (3)
  - Ocular hyperaemia [Unknown]
  - Eye irritation [Unknown]
  - Foreign body sensation in eyes [Unknown]
